FAERS Safety Report 10479910 (Version 20)
Quarter: 2018Q1

REPORT INFORMATION
  Report Type: Report from Study
  Country: CA (occurrence: CA)
  Receive Date: 20140929
  Receipt Date: 20180209
  Transmission Date: 20180508
  Serious: Yes (Hospitalization, Other)
  Sender: FDA-Public Use
  Company Number: CA-ROCHE-1347297

PATIENT
  Age: 59 Year
  Sex: Female

DRUGS (13)
  1. ACETAMINOPHEN. [Concomitant]
     Active Substance: ACETAMINOPHEN
     Indication: PREMEDICATION
     Route: 048
     Dates: start: 20140206
  2. AMLODIPINE [Concomitant]
     Active Substance: AMLODIPINE BESYLATE
     Route: 065
  3. CARVEDILOL. [Concomitant]
     Active Substance: CARVEDILOL
     Route: 065
  4. BENADRYL [Concomitant]
     Active Substance: DIPHENHYDRAMINE HYDROCHLORIDE
     Route: 048
  5. METHYLPREDNISOLONE. [Concomitant]
     Active Substance: METHYLPREDNISOLONE
     Indication: PREMEDICATION
     Route: 042
     Dates: start: 20140206
  6. RITUXAN [Suspect]
     Active Substance: RITUXIMAB
     Indication: RHEUMATOID ARTHRITIS
     Dosage: LAST DOSE ON 25/SEP/2014
     Route: 042
     Dates: start: 20140206
  7. TYLENOL [Concomitant]
     Active Substance: ACETAMINOPHEN
     Dosage: 659
     Route: 048
  8. LOSARTAN. [Concomitant]
     Active Substance: LOSARTAN
     Route: 065
  9. LEFLUNOMIDE. [Concomitant]
     Active Substance: LEFLUNOMIDE
     Route: 065
  10. FOSRENOL [Concomitant]
     Active Substance: LANTHANUM CARBONATE
     Dosage: WITH MEALS REPLAVITE (VITAMIN)
     Route: 065
  11. SOLU-MEDROL [Concomitant]
     Active Substance: METHYLPREDNISOLONE SODIUM SUCCINATE
     Dosage: 100
     Route: 042
  12. PREDNISONE. [Concomitant]
     Active Substance: PREDNISONE
     Route: 065
  13. DIPHENHYDRAMINE. [Concomitant]
     Active Substance: DIPHENHYDRAMINE
     Indication: PREMEDICATION
     Route: 048
     Dates: start: 20140206

REACTIONS (16)
  - Ear infection [Recovered/Resolved]
  - Infusion related reaction [Unknown]
  - Pneumonia [Recovering/Resolving]
  - Rheumatoid arthritis [Unknown]
  - Joint swelling [Unknown]
  - Pain [Not Recovered/Not Resolved]
  - Eye disorder [Recovered/Resolved]
  - Blood glucose increased [Recovering/Resolving]
  - Infusion related reaction [Recovered/Resolved]
  - Anxiety [Recovered/Resolved]
  - Abdominal pain [Recovered/Resolved]
  - Infection [Unknown]
  - Post procedural infection [Recovered/Resolved]
  - Arthralgia [Unknown]
  - Arthritis [Unknown]
  - Emotional distress [Unknown]

NARRATIVE: CASE EVENT DATE: 20140206
